FAERS Safety Report 4462027-3 (Version None)
Quarter: 2004Q3

REPORT INFORMATION
  Report Type: 
  Country: None (occurrence: None)
  Receive Date: 20040929
  Receipt Date: 20040917
  Transmission Date: 20050211
  Serious: Yes (Other)
  Sender: FDA-Public Use
  Company Number: GB-BRISTOL-MYERS SQUIBB COMPANY-12707410

PATIENT
  Age: 64 Year
  Sex: Male
  Weight: 77 kg

DRUGS (6)
  1. ARIPIPRAZOLE [Suspect]
     Indication: SCHIZOPHRENIA
     Route: 048
     Dates: start: 20040623, end: 20040623
  2. HUMALOG [Concomitant]
     Indication: DIABETES MELLITUS
     Route: 058
  3. METFORMIN HCL [Concomitant]
     Indication: DIABETES MELLITUS
     Route: 048
     Dates: start: 19990101
  4. MOXONIDINE [Concomitant]
     Indication: BLOOD PRESSURE INCREASED
     Dosage: 400 MCG
     Route: 048
     Dates: start: 20001006
  5. HALOPERIDOL [Concomitant]
     Indication: SCHIZOPHRENIA
     Route: 048
     Dates: start: 20000101
  6. ATENOLOL [Concomitant]
     Route: 048
     Dates: start: 20010101

REACTIONS (3)
  - CIRCULATORY COLLAPSE [None]
  - PRESCRIBED OVERDOSE [None]
  - VOMITING [None]
